FAERS Safety Report 21321965 (Version 1)
Quarter: 2022Q3

REPORT INFORMATION
  Report Type: Spontaneous
  Country: US (occurrence: None)
  Receive Date: 20220909
  Receipt Date: 20220909
  Transmission Date: 20221027
  Serious: No
  Sender: FDA-Public Use
  Company Number: None

PATIENT
  Age: 66 Year
  Sex: Male

DRUGS (10)
  1. TACROLIMUS [Suspect]
     Active Substance: TACROLIMUS
     Indication: Lung transplant
     Dosage: FREQUENCY : TWICE A DAY;?
     Route: 048
     Dates: start: 20200729
  2. TACROLIMUS [Suspect]
     Active Substance: TACROLIMUS
     Indication: Road traffic accident
  3. POSACONAZOLE [Concomitant]
     Active Substance: POSACONAZOLE
  4. CARVEDILOL [Concomitant]
  5. PREDNISONE [Concomitant]
  6. AZITHROMYCIN [Concomitant]
  7. VALGANCICLOVIR [Concomitant]
     Active Substance: VALGANCICLOVIR
  8. PREVYMIS [Concomitant]
     Active Substance: LETERMOVIR
  9. ACYCLOVIR [Concomitant]
     Active Substance: ACYCLOVIR
  10. FUROSEMIDE [Concomitant]
     Active Substance: FUROSEMIDE

REACTIONS (3)
  - Hypertension [None]
  - Oedema peripheral [None]
  - Lung transplant [None]

NARRATIVE: CASE EVENT DATE: 20220830
